FAERS Safety Report 5589857-9 (Version None)
Quarter: 2008Q1

REPORT INFORMATION
  Report Type: 
  Country: None (occurrence: None)
  Receive Date: 20080114
  Receipt Date: 20080107
  Transmission Date: 20080703
  Serious: Yes (Other)
  Sender: FDA-Public Use
  Company Number: FR-ROCHE-540428

PATIENT
  Age: 92 Year
  Sex: Male

DRUGS (8)
  1. ROCEPHIN [Suspect]
     Dosage: FORM REPORTED: INJECTABLE SOLUTION
     Route: 042
     Dates: start: 20071108, end: 20071114
  2. FLAGYL [Concomitant]
     Route: 042
     Dates: start: 20071108, end: 20071109
  3. EXELON [Concomitant]
     Route: 048
     Dates: end: 20071114
  4. ZESTORETIC [Concomitant]
  5. CARDENSIEL [Concomitant]
  6. PREVISCAN [Concomitant]
  7. HEMIGOXINE NATIVELLE [Concomitant]
  8. DIAMICRON [Concomitant]

REACTIONS (3)
  - DYSKINESIA [None]
  - MYOCLONUS [None]
  - TREMOR [None]
